FAERS Safety Report 11124318 (Version 1)
Quarter: 2015Q2

REPORT INFORMATION
  Report Type: Spontaneous
  Country: US (occurrence: None)
  Receive Date: 20150519
  Receipt Date: 20150519
  Transmission Date: 20150821
  Serious: Yes (Other)
  Sender: FDA-Public Use
  Company Number: None

PATIENT
  Age: 64 Year
  Sex: Female
  Weight: 69.4 kg

DRUGS (7)
  1. DRY EYE OMEGA GELCAPS [Concomitant]
  2. ASPIRIN. [Concomitant]
     Active Substance: ASPIRIN
  3. AZITHROMYCIN [Suspect]
     Active Substance: AZITHROMYCIN ANHYDROUS
     Indication: COUGH
     Dosage: 6 PILLS  2 INIT, THEN 1 DAI TAKEN BY MOUTH
     Route: 048
     Dates: start: 20150512, end: 20150513
  4. MULTIVITAMIN [Concomitant]
     Active Substance: VITAMINS
  5. BIOTIN [Concomitant]
     Active Substance: BIOTIN
  6. RESTASIS [Concomitant]
     Active Substance: CYCLOSPORINE
  7. VITAMIN D3 [Concomitant]
     Active Substance: CHOLECALCIFEROL

REACTIONS (5)
  - Abdominal pain [None]
  - Muscle spasms [None]
  - Diarrhoea [None]
  - Vomiting [None]
  - Colitis [None]

NARRATIVE: CASE EVENT DATE: 20150513
